FAERS Safety Report 4836376-0 (Version None)
Quarter: 2005Q4

REPORT INFORMATION
  Report Type: 
  Country: None (occurrence: None)
  Receive Date: 20051123
  Receipt Date: 20051111
  Transmission Date: 20060501
  Serious: Yes (Other)
  Sender: FDA-Public Use
  Company Number: PHNU2005DE03739

PATIENT
  Age: 74 Year
  Sex: Male

DRUGS (2)
  1. ZOMETA [Suspect]
     Indication: METASTASIS
     Dosage: 1 DF, QMO
  2. CASODEX [Concomitant]
     Indication: PROSTATE CANCER
     Route: 048

REACTIONS (3)
  - BONE DISORDER [None]
  - ORAL SURGERY [None]
  - TOOTH EXTRACTION [None]
